FAERS Safety Report 22146765 (Version 1)
Quarter: 2023Q1

REPORT INFORMATION
  Report Type: Spontaneous
  Country: JP (occurrence: JP)
  Receive Date: 20230328
  Receipt Date: 20230328
  Transmission Date: 20230418
  Serious: Yes (Other)
  Sender: FDA-Public Use
  Company Number: JP-PFIZER INC-PV202300054098

PATIENT
  Age: 56 Year
  Sex: Male

DRUGS (15)
  1. HYDROCORTISONE [Suspect]
     Active Substance: HYDROCORTISONE
     Indication: Adrenal insufficiency
     Dosage: 60 MG
     Route: 048
  2. ETRETINATE [Concomitant]
     Active Substance: ETRETINATE
     Dosage: 30 MG, DAILY
     Route: 048
  3. ETRETINATE [Concomitant]
     Active Substance: ETRETINATE
     Dosage: 40 MG, DAILY
     Route: 048
  4. ETRETINATE [Concomitant]
     Active Substance: ETRETINATE
     Dosage: 30 MG, DAILY
     Route: 048
  5. ETRETINATE [Concomitant]
     Active Substance: ETRETINATE
     Dosage: 20 MG, DAILY
     Route: 048
  6. PREDNISOLONE [Concomitant]
     Active Substance: PREDNISOLONE
     Dosage: 80 MG, DAILY FOR 5 DAYS
     Route: 048
  7. PREDNISOLONE [Concomitant]
     Active Substance: PREDNISOLONE
     Dosage: 40 MG, DAILY FOR 5 DAYS
     Route: 048
  8. PREDNISOLONE [Concomitant]
     Active Substance: PREDNISOLONE
     Dosage: 20 MG, DAILY FOR 11 DAYS
     Route: 048
  9. PREDNISOLONE [Concomitant]
     Active Substance: PREDNISOLONE
     Dosage: 17.5 MG, DAILY
     Route: 048
  10. SULFAMETHOXAZOLE\TRIMETHOPRIM [Concomitant]
     Active Substance: SULFAMETHOXAZOLE\TRIMETHOPRIM
     Dosage: 9 DF, DAILY
  11. SULFAMETHOXAZOLE\TRIMETHOPRIM [Concomitant]
     Active Substance: SULFAMETHOXAZOLE\TRIMETHOPRIM
     Dosage: 1 DF, DAILY
  12. FAMOTIDINE [Concomitant]
     Active Substance: FAMOTIDINE
  13. BILASTINE [Concomitant]
     Active Substance: BILASTINE
  14. HERBALS [Concomitant]
     Active Substance: HERBALS
  15. ALENDRONATE SODIUM [Concomitant]
     Active Substance: ALENDRONATE SODIUM

REACTIONS (1)
  - Pneumocystis jirovecii pneumonia [Recovered/Resolved]
